FAERS Safety Report 23287207 (Version 1)
Quarter: 2023Q4

REPORT INFORMATION
  Report Type: Other
  Country: FR (occurrence: FR)
  Receive Date: 20231212
  Receipt Date: 20231212
  Transmission Date: 20240110
  Serious: Yes (Hospitalization, Other)
  Sender: FDA-Public Use
  Company Number: None

PATIENT

DRUGS (5)
  1. DECA-DURABOLIN [Suspect]
     Active Substance: NANDROLONE DECANOATE
     Indication: Product used for unknown indication
     Dosage: UNK
     Route: 042
     Dates: start: 2012, end: 2022
  2. TRENBOLONE ACETATE [Suspect]
     Active Substance: TRENBOLONE ACETATE
     Indication: Product used for unknown indication
     Dosage: UNK
     Route: 042
     Dates: start: 2012, end: 2022
  3. DROMOSTANOLONE PROPIONATE [Suspect]
     Active Substance: DROMOSTANOLONE PROPIONATE
     Indication: Product used for unknown indication
     Dosage: UNK
     Route: 042
     Dates: start: 2012, end: 2022
  4. TESTOSTERONE ACETATE [Suspect]
     Active Substance: TESTOSTERONE ACETATE
     Indication: Product used for unknown indication
     Dosage: 1 ML, 1 DOSE WEEKLY
     Route: 042
     Dates: start: 2012, end: 2022
  5. CANNABIS SATIVA SUBSP. INDICA TOP [Concomitant]
     Active Substance: CANNABIS SATIVA SUBSP. INDICA TOP
     Indication: Product used for unknown indication
     Dosage: 4-5 JOINTS/JOUR
     Dates: start: 2003

REACTIONS (3)
  - Drug abuse [Unknown]
  - Toxic cardiomyopathy [Not Recovered/Not Resolved]
  - Cardio-respiratory arrest [Recovered/Resolved]

NARRATIVE: CASE EVENT DATE: 20120101
